FAERS Safety Report 11194402 (Version 2)
Quarter: 2015Q3

REPORT INFORMATION
  Report Type: Spontaneous
  Country: US (occurrence: US)
  Receive Date: 20150616
  Receipt Date: 20150909
  Transmission Date: 20151125
  Serious: No
  Sender: FDA-Public Use
  Company Number: US-GLAXOSMITHKLINE-US2015GSK047412

PATIENT
  Sex: Female

DRUGS (9)
  1. SUMATRIPTAN SOLUTION FOR INJECTION IN PRE-FILLED PEN [Suspect]
     Active Substance: SUMATRIPTAN
     Dosage: UNK
  2. SUMATRIPTAN SOLUTION FOR INJECTION IN PRE-FILLED PEN [Suspect]
     Active Substance: SUMATRIPTAN
     Dosage: UNK
  3. SUMATRIPTAN SOLUTION FOR INJECTION IN PRE-FILLED PEN [Suspect]
     Active Substance: SUMATRIPTAN
     Dosage: UNK
  4. SUMATRIPTAN SOLUTION FOR INJECTION IN PRE-FILLED PEN [Suspect]
     Active Substance: SUMATRIPTAN
     Dosage: UNK
  5. SUMATRIPTAN SOLUTION FOR INJECTION IN PRE-FILLED PEN [Suspect]
     Active Substance: SUMATRIPTAN
     Indication: MIGRAINE
     Dosage: UNK
     Route: 042
  6. SUMATRIPTAN SOLUTION FOR INJECTION IN PRE-FILLED PEN [Suspect]
     Active Substance: SUMATRIPTAN
     Dosage: UNK
  7. SUMATRIPTAN SOLUTION FOR INJECTION IN PRE-FILLED PEN [Suspect]
     Active Substance: SUMATRIPTAN
     Dosage: UNK
  8. SUMATRIPTAN SOLUTION FOR INJECTION IN PRE-FILLED PEN [Suspect]
     Active Substance: SUMATRIPTAN
     Dosage: UNK
  9. SUMATRIPTAN SOLUTION FOR INJECTION IN PRE-FILLED PEN [Suspect]
     Active Substance: SUMATRIPTAN
     Dosage: UNK

REACTIONS (4)
  - Device ineffective [Unknown]
  - Drug ineffective [Unknown]
  - Application site pain [Unknown]
  - Product quality issue [Unknown]
